FAERS Safety Report 15475000 (Version 2)
Quarter: 2019Q2

REPORT INFORMATION
  Report Type: Report from Study
  Country: US (occurrence: US)
  Receive Date: 20181008
  Receipt Date: 20190411
  Transmission Date: 20190711
  Serious: Yes (Other)
  Sender: FDA-Public Use
  Company Number: US-SA-2018SA236596

PATIENT
  Age: 50 Year
  Sex: Female

DRUGS (9)
  1. VITAMIN D NOS [Concomitant]
     Active Substance: VITAMIN D NOS
  2. NEURONTIN [Concomitant]
     Active Substance: GABAPENTIN
  3. TERIFLUNOMIDE. [Suspect]
     Active Substance: TERIFLUNOMIDE
     Indication: MULTIPLE SCLEROSIS
     Dosage: 14 MG, QD
     Route: 048
     Dates: start: 20180817
  4. PRILOSEC [Concomitant]
     Active Substance: OMEPRAZOLE MAGNESIUM
  5. MELATONIN [Concomitant]
     Active Substance: MELATONIN
  6. AMITRIPTYLINE HCL [Concomitant]
     Active Substance: AMITRIPTYLINE
  7. KLONOPIN [Concomitant]
     Active Substance: CLONAZEPAM
  8. LIPITOR [Concomitant]
     Active Substance: ATORVASTATIN CALCIUM
  9. INDOCIN [Concomitant]
     Active Substance: INDOMETHACIN

REACTIONS (9)
  - Sleep disorder [Not Recovered/Not Resolved]
  - Pharyngitis [Unknown]
  - Abscess oral [Unknown]
  - Thyroid cancer [Unknown]
  - Feeling cold [Not Recovered/Not Resolved]
  - Endodontic procedure [Unknown]
  - Heart rate increased [Recovered/Resolved]
  - Flushing [Recovered/Resolved]
  - Paraesthesia [Not Recovered/Not Resolved]

NARRATIVE: CASE EVENT DATE: 201808
